FAERS Safety Report 4711761-6 (Version None)
Quarter: 2005Q3

REPORT INFORMATION
  Report Type: 
  Country: None (occurrence: None)
  Receive Date: 20050711
  Receipt Date: 20050711
  Transmission Date: 20060218
  Serious: Yes (Hospitalization, Disabling, Congenital Anomaly)
  Sender: FDA-Public Use
  Company Number: None

PATIENT
  Age: 32 Year
  Sex: Male
  Weight: 79.3795 kg

DRUGS (1)
  1. TRAZODONE 75 MG [Suspect]
     Indication: INSOMNIA
     Dosage: 1 DAILY ORAL
     Route: 048
     Dates: start: 20011117, end: 20050514

REACTIONS (1)
  - PERSONALITY CHANGE DUE TO A GENERAL MEDICAL CONDITION [None]
